FAERS Safety Report 11740833 (Version 5)
Quarter: 2021Q3

REPORT INFORMATION
  Report Type: Spontaneous
  Country: FR (occurrence: FR)
  Receive Date: 20151114
  Receipt Date: 20210908
  Transmission Date: 20211014
  Serious: Yes (Disabling, Congenital Anomaly, Other)
  Sender: FDA-Public Use
  Company Number: FR-ABBVIE-15P-056-1500345-00

PATIENT
  Sex: Male

DRUGS (8)
  1. SPASFON [Concomitant]
     Indication: MATERNAL EXPOSURE TIMING UNSPECIFIED
  2. DUSPATALIN [Concomitant]
     Active Substance: MEBEVERINE
     Indication: MATERNAL EXPOSURE TIMING UNSPECIFIED
  3. SPECIAFOLDINE [Concomitant]
     Active Substance: FOLIC ACID
     Indication: MATERNAL EXPOSURE TIMING UNSPECIFIED
  4. HEPT A MYL [Concomitant]
     Active Substance: HEPTAMINOL HYDROCHLORIDE
     Indication: MATERNAL EXPOSURE TIMING UNSPECIFIED
  5. UVEDOSE [Concomitant]
     Active Substance: CHOLECALCIFEROL
     Indication: MATERNAL EXPOSURE TIMING UNSPECIFIED
  6. TARDYFERON B9 [Concomitant]
     Active Substance: FERROUS SULFATE\FOLIC ACID\GASTRIC MUCIN
     Indication: MATERNAL EXPOSURE TIMING UNSPECIFIED
  7. TIMOFEROL [Concomitant]
     Active Substance: ASCORBIC ACID\FERROUS SULFATE
     Indication: MATERNAL EXPOSURE TIMING UNSPECIFIED
  8. DEPAKINE CHRONO [Suspect]
     Active Substance: VALPROATE SODIUM
     Indication: MATERNAL EXPOSURE TIMING UNSPECIFIED
     Route: 064

REACTIONS (19)
  - Congenital anomaly [Unknown]
  - Dysmorphism [Unknown]
  - Developmental delay [Unknown]
  - Anger [Unknown]
  - Nasal disorder [Unknown]
  - Psychomotor skills impaired [Unknown]
  - Enuresis [Unknown]
  - Prominent epicanthal folds [Unknown]
  - Oropharyngeal discomfort [Unknown]
  - Abnormal palmar/plantar creases [Unknown]
  - Supernumerary nipple [Unknown]
  - Anxiety [Unknown]
  - Ear disorder [Unknown]
  - Intellectual disability [Unknown]
  - Fear of crowded places [Unknown]
  - Haemangioma of skin [Unknown]
  - Foetal exposure during pregnancy [Unknown]
  - Congenital nail disorder [Unknown]
  - Pectus excavatum [Unknown]
